FAERS Safety Report 5555788-3 (Version None)
Quarter: 2007Q4

REPORT INFORMATION
  Report Type: 
  Country: None (occurrence: None)
  Receive Date: 20071213
  Receipt Date: 20071205
  Transmission Date: 20080405
  Serious: Yes (Hospitalization, Other)
  Sender: FDA-Public Use
  Company Number: GB-PFIZER INC-2007082905

PATIENT
  Sex: Female
  Weight: 59 kg

DRUGS (3)
  1. EXUBERA [Suspect]
     Indication: DIABETES MELLITUS
     Dosage: DAILY DOSE:8MG
     Route: 055
     Dates: start: 20070910, end: 20071127
  2. LEVOTHYROXINE SODIUM [Concomitant]
     Route: 048
  3. CIPRAMIL [Concomitant]
     Route: 048

REACTIONS (7)
  - DRY MOUTH [None]
  - DYSPNOEA [None]
  - HYPERGLYCAEMIA [None]
  - HYPOGLYCAEMIA [None]
  - ORAL PAIN [None]
  - VIRAL INFECTION [None]
  - VOMITING [None]
